FAERS Safety Report 24242656 (Version 1)
Quarter: 2024Q3

REPORT INFORMATION
  Report Type: Report from Study
  Country: FR (occurrence: FR)
  Receive Date: 20240823
  Receipt Date: 20240823
  Transmission Date: 20241017
  Serious: Yes (Hospitalization)
  Sender: SERVIER
  Company Number: FR-SERVIER-S24010241

PATIENT

DRUGS (9)
  1. PEGASPARGASE [Suspect]
     Active Substance: PEGASPARGASE
     Indication: Acute lymphocytic leukaemia
     Dosage: 2650 IU, D4, D43
     Route: 042
     Dates: start: 20221016, end: 20221201
  2. VINCRISTINE [Suspect]
     Active Substance: VINCRISTINE
     Indication: Acute lymphocytic leukaemia
     Dosage: 1.6 MG, D1, D8, D15, D43, D50
     Route: 042
     Dates: start: 20221013, end: 20221208
  3. DOXORUBICIN [Suspect]
     Active Substance: DOXORUBICIN
     Indication: Acute lymphocytic leukaemia
     Dosage: 26.5 MG (D1, D8, D15)
     Route: 042
     Dates: start: 20221013, end: 20221027
  4. DEXAMETHASONE [Suspect]
     Active Substance: DEXAMETHASONE
     Indication: Acute lymphocytic leukaemia
     Dosage: 10.5 MG, D1 TO D7, D15 TO D21
     Route: 048
     Dates: start: 20221013, end: 20221102
  5. CYCLOPHOSPHAMIDE [Suspect]
     Active Substance: CYCLOPHOSPHAMIDE
     Indication: Acute lymphocytic leukaemia
     Dosage: 100 MG, D29
     Route: 042
     Dates: start: 20221117, end: 20221117
  6. CYTARABINE [Suspect]
     Active Substance: CYTARABINE
     Indication: Acute lymphocytic leukaemia
     Dosage: 79 MG, D31 TO D34 AND D38 TO D4
     Route: 042
     Dates: start: 20221119, end: 20221129
  7. CYTARABINE [Suspect]
     Active Substance: CYTARABINE
     Dosage: 30 MG, D4, D31
     Route: 037
     Dates: start: 20221016, end: 20221119
  8. METHOTREXATE [Suspect]
     Active Substance: METHOTREXATE
     Indication: Acute lymphocytic leukaemia
     Dosage: 15 MG IT, D4, D31
     Route: 037
     Dates: start: 20221016, end: 20221119
  9. MERCAPTOPURINE [Suspect]
     Active Substance: MERCAPTOPURINE
     Indication: Acute lymphocytic leukaemia
     Dosage: 64 MG, D29 TO D42
     Route: 048
     Dates: start: 20221117, end: 20221130

REACTIONS (1)
  - Febrile bone marrow aplasia [Recovered/Resolved]

NARRATIVE: CASE EVENT DATE: 20221208
